FAERS Safety Report 23226844 (Version 2)
Quarter: 2023Q4

REPORT INFORMATION
  Report Type: Spontaneous
  Country: AU (occurrence: None)
  Receive Date: 20231124
  Receipt Date: 20231212
  Transmission Date: 20240110
  Serious: Yes (Other)
  Sender: FDA-Public Use
  Company Number: 2023A262779

PATIENT
  Age: 25919 Day
  Sex: Female

DRUGS (1)
  1. RILAST [Suspect]
     Active Substance: BUDESONIDE\FORMOTEROL
     Indication: Emphysema
     Dosage: 2 PUFFS TWO TIMES A DAY
     Route: 055
     Dates: start: 20231026, end: 20231031

REACTIONS (9)
  - Oxygen saturation decreased [Recovered/Resolved]
  - Condition aggravated [Unknown]
  - Presyncope [Unknown]
  - Dyspnoea [Unknown]
  - Candida infection [Unknown]
  - Emotional distress [Unknown]
  - Product dispensing error [Unknown]
  - Off label use [Unknown]
  - Drug ineffective for unapproved indication [Unknown]

NARRATIVE: CASE EVENT DATE: 20231026
